FAERS Safety Report 17381247 (Version 1)
Quarter: 2020Q1

REPORT INFORMATION
  Report Type: Spontaneous
  Country: US (occurrence: US)
  Receive Date: 20200206
  Receipt Date: 20200206
  Transmission Date: 20200409
  Serious: Yes (Hospitalization, Other)
  Sender: FDA-Public Use
  Company Number: US-ABBVIE-19K-163-2782287-00

PATIENT
  Sex: Female

DRUGS (8)
  1. HUMIRA [Suspect]
     Active Substance: ADALIMUMAB
     Indication: PSORIASIS
     Route: 058
     Dates: start: 2016, end: 2016
  2. HUMIRA [Suspect]
     Active Substance: ADALIMUMAB
     Route: 058
     Dates: start: 201609
  3. ESTROGEN [Concomitant]
     Active Substance: ESTROGENS
     Indication: HORMONE REPLACEMENT THERAPY
     Route: 047
  4. PREDNISOLONE ACETATE. [Concomitant]
     Active Substance: PREDNISOLONE ACETATE
     Indication: CATARACT OPERATION
     Route: 047
  5. OFLOXACIN. [Concomitant]
     Active Substance: OFLOXACIN
     Indication: CATARACT OPERATION
     Route: 047
  6. IBUPROFEN. [Concomitant]
     Active Substance: IBUPROFEN
     Indication: HEADACHE
  7. MOTRIN [Concomitant]
     Active Substance: IBUPROFEN
     Indication: HEADACHE
  8. ZYRTEC DAIICHI [Concomitant]
     Indication: HYPERSENSITIVITY

REACTIONS (5)
  - Lower limb fracture [Recovered/Resolved]
  - Cataract [Recovered/Resolved]
  - Fall [Recovered/Resolved]
  - Drug hypersensitivity [Recovered/Resolved]
  - Vomiting [Recovered/Resolved]

NARRATIVE: CASE EVENT DATE: 2016
